FAERS Safety Report 10923413 (Version 1)
Quarter: 2015Q1

REPORT INFORMATION
  Report Type: Spontaneous
  Country: US (occurrence: US)
  Receive Date: 20150318
  Receipt Date: 20150318
  Transmission Date: 20150721
  Serious: Yes (Other)
  Sender: FDA-Public Use
  Company Number: US-GLENMARK GENERICS INC.-2015GMK014723

PATIENT
  Age: 72 Year
  Sex: Male

DRUGS (3)
  1. ASPIRIN. [Interacting]
     Active Substance: ASPIRIN
     Indication: MYALGIA
     Dosage: UNK
  2. NAPROXEN. [Suspect]
     Active Substance: NAPROXEN
     Indication: MYALGIA
     Dosage: UNK
  3. VISMODEGIB [Interacting]
     Active Substance: VISMODEGIB
     Indication: BASAL CELL CARCINOMA
     Dosage: UNK

REACTIONS (2)
  - Drug interaction [Unknown]
  - Cholestatic liver injury [Unknown]
